FAERS Safety Report 5807674-9 (Version None)
Quarter: 2008Q3

REPORT INFORMATION
  Report Type: 
  Country: None (occurrence: None)
  Receive Date: 20080711
  Receipt Date: 20080709
  Transmission Date: 20090109
  Serious: Yes (Hospitalization)
  Sender: FDA-Public Use
  Company Number: US-ASTRAZENECA-2008UW13756

PATIENT
  Age: 81 Year
  Sex: Female
  Weight: 68 kg

DRUGS (9)
  1. SYMBICORT [Suspect]
     Indication: DYSPNOEA
     Dosage: 160/4.5 MCG - 1 PUFF BID
     Route: 055
  2. ALBUTEROL [Concomitant]
     Route: 055
  3. EFFEXOR XR [Concomitant]
  4. ATENOLOL [Concomitant]
     Route: 048
  5. VICODIN [Concomitant]
  6. LEVOXYL [Concomitant]
  7. LISINOPRIL [Concomitant]
     Dosage: 40 MG
     Route: 048
  8. BONIVA [Concomitant]
  9. PRILOSEC [Concomitant]
     Route: 048

REACTIONS (2)
  - GASTROINTESTINAL DISORDER [None]
  - HAEMATOCHEZIA [None]
